FAERS Safety Report 6387503-8 (Version None)
Quarter: 2009Q4

REPORT INFORMATION
  Report Type: 
  Country: None (occurrence: None)
  Receive Date: 20091005
  Receipt Date: 20090923
  Transmission Date: 20100525
  Serious: Yes (Other)
  Sender: FDA-Public Use
  Company Number: US-BIOGENIDEC-2009BI030521

PATIENT
  Age: 45 Year
  Sex: Female

DRUGS (3)
  1. AVONEX [Suspect]
     Indication: MULTIPLE SCLEROSIS
     Route: 030
     Dates: start: 20060401, end: 20060501
  2. AVONEX [Suspect]
     Route: 030
     Dates: start: 20060501, end: 20070101
  3. ADVIL [Concomitant]
     Indication: PREMEDICATION
     Route: 048
     Dates: start: 20060401

REACTIONS (7)
  - ANAEMIA [None]
  - BONE MARROW FAILURE [None]
  - CLOSTRIDIAL INFECTION [None]
  - HERPES ZOSTER [None]
  - INFLUENZA LIKE ILLNESS [None]
  - SINUSITIS [None]
  - TOOTH ABSCESS [None]
